FAERS Safety Report 9034295 (Version 1)
Quarter: 2013Q1

REPORT INFORMATION
  Report Type: Spontaneous
  Country: US (occurrence: US)
  Receive Date: 20130128
  Receipt Date: 20130128
  Transmission Date: 20140127
  Serious: Yes (Death, Hospitalization, Other)
  Sender: FDA-Public Use
  Company Number: US-AMGEN-USASP2011048942

PATIENT
  Age: 84 Year
  Sex: Female

DRUGS (36)
  1. PROLIA [Suspect]
     Indication: OSTEOPOROSIS
     Dosage: 60 MG, Q6MO
     Dates: start: 20101124
  2. PROLIA [Suspect]
     Dosage: 60 MG, Q6MO
     Route: 058
     Dates: start: 20110524
  3. NEXIUM                             /01479302/ [Concomitant]
     Dosage: 40 MG, QD
     Route: 048
  4. ENTERIC ASPIRIN [Concomitant]
     Dosage: 325 MG, QD
     Route: 048
  5. ENTERIC ASPIRIN [Concomitant]
     Dosage: 162 MG, BID
     Route: 048
  6. KLOR-CON [Concomitant]
     Dosage: 10 MEQ, QD
     Route: 048
  7. KLOR-CON [Concomitant]
     Dosage: 20 MEQ, QD
     Route: 048
  8. CALCIUM + VITAMIN D [Concomitant]
     Dosage: 600 MG, QD
     Route: 048
  9. VITAMIN D3 [Concomitant]
     Dosage: 5000 IU, QD
     Route: 048
  10. FENOFIBRATE [Concomitant]
     Dosage: 145 MG, QD
     Route: 048
  11. SIMVASTATIN [Concomitant]
     Dosage: 40 MG, QD
     Route: 048
  12. METOPROLOL [Concomitant]
     Dosage: 50 MG, BID
     Route: 048
  13. ICAPS [Concomitant]
  14. MULTIVITAMIN                       /00097801/ [Concomitant]
     Route: 048
  15. FISH OIL [Concomitant]
     Dosage: 1 G, QD
     Route: 048
  16. VITAMIN A /00056001/ [Concomitant]
     Dosage: 8000 IU, QD
     Route: 048
  17. VITAMIN E                          /00110501/ [Concomitant]
     Dosage: 400 IU, QD
     Route: 048
  18. FUROSEMIDE [Concomitant]
     Dosage: 20 MG, QD
     Route: 048
  19. TYLENOL /00020001/ [Concomitant]
     Dosage: 325 MG, PRN
     Route: 048
  20. CLONIDINE [Concomitant]
     Dosage: 0.1 MG, QD
     Route: 048
     Dates: end: 201106
  21. CLONIDINE [Concomitant]
     Dosage: UNK, QWK
     Route: 062
  22. MIRALAX [Concomitant]
     Indication: CONSTIPATION
     Dosage: UNK UNK, PRN
  23. COLACE [Concomitant]
     Dosage: 100 MG, PRN
  24. NORVASC [Concomitant]
     Dosage: 10 MG, QD
     Route: 048
     Dates: end: 201106
  25. DIOVAN HCT [Concomitant]
     Dosage: UNK UNK, BID
     Route: 048
  26. TRICOR                             /00090101/ [Concomitant]
     Dosage: 145 MG, QD
     Route: 048
  27. PROPOFOL [Concomitant]
  28. LACTATED RINGER^S [Concomitant]
  29. VICODIN [Concomitant]
     Dosage: 500 MG, UNK
     Route: 048
  30. AMBIEN [Concomitant]
     Dosage: 5 MG, QD
  31. METRONIDAZOLE [Concomitant]
     Dosage: 500 MG, TID
  32. MVI-ADULT [Concomitant]
  33. LOPRESSOR [Concomitant]
     Dosage: 50 MG, BID
     Route: 048
  34. IBUPROFEN [Concomitant]
  35. LIDOCAINE [Concomitant]
     Indication: PAIN
     Route: 062
  36. ALBUTEROL                          /00139501/ [Concomitant]
     Dosage: UNK
     Route: 055

REACTIONS (71)
  - Death [Fatal]
  - Acute respiratory failure [Unknown]
  - Anaemia [Unknown]
  - Leukocytosis [Unknown]
  - Platelet count increased [Unknown]
  - Liver abscess [Unknown]
  - Hospitalisation [Unknown]
  - Cholelithiasis [Unknown]
  - Abdominal pain upper [Unknown]
  - Suicidal ideation [Unknown]
  - Depression [Unknown]
  - Hallucination [Recovering/Resolving]
  - Cardiac failure congestive [Unknown]
  - Transient ischaemic attack [Unknown]
  - Lung abscess [Recovered/Resolved]
  - Hypovolaemia [Unknown]
  - Hypertension [Unknown]
  - Cerebral infarction [Unknown]
  - Renal failure chronic [Unknown]
  - Pyrexia [Recovered/Resolved]
  - Endocarditis [Unknown]
  - Atelectasis [Unknown]
  - Asthenia [Unknown]
  - Cachexia [Unknown]
  - Haemorrhage [Unknown]
  - Hepatic cyst [Unknown]
  - Activities of daily living impaired [Unknown]
  - Malnutrition [Unknown]
  - Fall [Unknown]
  - Chills [Unknown]
  - Vertigo [Unknown]
  - Vertigo positional [Unknown]
  - Feeling of body temperature change [Unknown]
  - Paraesthesia [Unknown]
  - Pain [Unknown]
  - Myalgia [Unknown]
  - Abdominal discomfort [Recovering/Resolving]
  - Vomiting [Recovering/Resolving]
  - Malaise [Unknown]
  - Fatigue [Unknown]
  - Neck pain [Unknown]
  - Dyspnoea [Unknown]
  - Red blood cell sedimentation rate increased [Unknown]
  - Polymyalgia rheumatica [Unknown]
  - Blood creatinine increased [Unknown]
  - C-reactive protein increased [Unknown]
  - Serum ferritin increased [Unknown]
  - Productive cough [Unknown]
  - Wheelchair user [Unknown]
  - Inflammation [Unknown]
  - Infection [Unknown]
  - Sputum discoloured [Unknown]
  - Night sweats [Unknown]
  - Abdominal pain [Unknown]
  - Adjustment disorder with depressed mood [Unknown]
  - Chest pain [Unknown]
  - Bacterial infection [Unknown]
  - Regurgitation [Unknown]
  - Foreign body aspiration [Unknown]
  - Dehydration [Unknown]
  - Nausea [Unknown]
  - Decreased appetite [Recovering/Resolving]
  - Weight decreased [Unknown]
  - Dysgeusia [Unknown]
  - Failure to thrive [Unknown]
  - Lethargy [Unknown]
  - Somnolence [Unknown]
  - Hypophagia [Unknown]
  - Faecal incontinence [Unknown]
  - Incontinence [Unknown]
  - Band neutrophil count increased [Unknown]
